FAERS Safety Report 17715306 (Version 1)
Quarter: 2020Q2

REPORT INFORMATION
  Report Type: Report from Study
  Country: US (occurrence: US)
  Receive Date: 20200427
  Receipt Date: 20200427
  Transmission Date: 20200714
  Serious: Yes (Other)
  Sender: FDA-Public Use
  Company Number: US-ASTRAZENECA-2020SE38224

PATIENT
  Age: 5017 Day
  Sex: Female
  Weight: 59.4 kg

DRUGS (7)
  1. SYMBICORT [Suspect]
     Active Substance: BUDESONIDE\FORMOTEROL FUMARATE DIHYDRATE
     Indication: ASTHMA
     Dosage: TWO TIMES A DAY
     Route: 055
  2. PREDNISONE. [Concomitant]
     Active Substance: PREDNISONE
     Indication: BRONCHITIS
     Route: 065
     Dates: start: 20200121, end: 20200125
  3. FASENRA [Suspect]
     Active Substance: BENRALIZUMAB
     Indication: ASTHMA
     Route: 058
     Dates: start: 20191119, end: 20200302
  4. XELJANZ [Concomitant]
     Active Substance: TOFACITINIB CITRATE
     Indication: ECZEMA
     Route: 048
     Dates: end: 20200320
  5. SINGULAIR [Concomitant]
     Active Substance: MONTELUKAST SODIUM
     Indication: HYPERSENSITIVITY
     Route: 065
  6. OMEPRAZOLE. [Concomitant]
     Active Substance: OMEPRAZOLE
     Indication: EOSINOPHILIC OESOPHAGITIS
     Route: 048
  7. CLOBETASOL [Concomitant]
     Active Substance: CLOBETASOL
     Route: 065

REACTIONS (6)
  - Hypersensitivity [Unknown]
  - Skin burning sensation [Unknown]
  - Drug hypersensitivity [Unknown]
  - Urticaria [Unknown]
  - Nausea [Recovered/Resolved]
  - Rash [Recovered/Resolved]

NARRATIVE: CASE EVENT DATE: 20200123
